FAERS Safety Report 26067443 (Version 1)
Quarter: 2025Q4

REPORT INFORMATION
  Report Type: Spontaneous
  Country: CA (occurrence: CA)
  Receive Date: 20251120
  Receipt Date: 20251120
  Transmission Date: 20260117
  Serious: Yes (Death, Life-Threatening, Hospitalization, Disabling, Congenital Anomaly, Other)
  Sender: Haleon PLC
  Company Number: CA-002147023-NVSC2025CA104688

PATIENT
  Age: 43 Year
  Sex: Female
  Weight: 96 kg

DRUGS (96)
  1. VOLTAREN [Suspect]
     Active Substance: DICLOFENAC SODIUM
     Indication: Product used for unknown indication
     Dosage: UNK
  2. VOLTAREN [Suspect]
     Active Substance: DICLOFENAC SODIUM
     Dosage: UNK
  3. VOLTAREN [Suspect]
     Active Substance: DICLOFENAC SODIUM
     Dosage: UNK
  4. VOLTAREN [Suspect]
     Active Substance: DICLOFENAC SODIUM
     Dosage: UNK
  5. RANITIDINE HYDROCHLORIDE [Suspect]
     Active Substance: RANITIDINE HYDROCHLORIDE
     Indication: Rheumatoid arthritis
     Dosage: ROUTE: UNKNOWN
  6. AIMOVIG [Suspect]
     Active Substance: ERENUMAB-AOOE
     Indication: Migraine
     Dosage: UNK
  7. AIMOVIG [Suspect]
     Active Substance: ERENUMAB-AOOE
     Dosage: UNK
  8. XELJANZ [Suspect]
     Active Substance: TOFACITINIB CITRATE
     Indication: Rheumatoid arthritis
     Dosage: 5 MG, QD; ROUTE: UNKNOWN
  9. CETIRIZINE HYDROCHLORIDE [Suspect]
     Active Substance: CETIRIZINE HYDROCHLORIDE
     Indication: Rheumatoid arthritis
     Dosage: 10 MG, QD
  10. CETIRIZINE HYDROCHLORIDE [Suspect]
     Active Substance: CETIRIZINE HYDROCHLORIDE
     Indication: Off label use
     Dosage: 10 MG
  11. CETIRIZINE HYDROCHLORIDE [Suspect]
     Active Substance: CETIRIZINE HYDROCHLORIDE
     Dosage: 25 MG
  12. TRAMADOL HYDROCHLORIDE [Suspect]
     Active Substance: TRAMADOL HYDROCHLORIDE
     Indication: Product used for unknown indication
     Dosage: UNK
  13. SULFASALAZINE [Suspect]
     Active Substance: SULFASALAZINE
     Indication: Rheumatoid arthritis
     Dosage: 100 MG
  14. SULFASALAZINE [Suspect]
     Active Substance: SULFASALAZINE
     Dosage: 2000 MG, QD
  15. SULFASALAZINE [Suspect]
     Active Substance: SULFASALAZINE
     Dosage: 500 MG
  16. SULFASALAZINE [Suspect]
     Active Substance: SULFASALAZINE
     Dosage: 1 DOSAGE FORM
  17. SULFASALAZINE [Suspect]
     Active Substance: SULFASALAZINE
     Dosage: 1 G, Q12H
  18. SULFASALAZINE [Suspect]
     Active Substance: SULFASALAZINE
     Dosage: 2 DOSAGE FORM, QD
  19. SULFASALAZINE [Suspect]
     Active Substance: SULFASALAZINE
     Dosage: 2 G, QD
  20. SULFASALAZINE [Suspect]
     Active Substance: SULFASALAZINE
     Dosage: 4 MG, QD
  21. SULFASALAZINE [Suspect]
     Active Substance: SULFASALAZINE
     Dosage: 10 MG
  22. SULFASALAZINE [Suspect]
     Active Substance: SULFASALAZINE
     Dosage: 1000 MG
  23. SULFASALAZINE [Suspect]
     Active Substance: SULFASALAZINE
     Dosage: 300 MG, QD
  24. SULFASALAZINE [Suspect]
     Active Substance: SULFASALAZINE
     Dosage: 1 G
  25. SULFASALAZINE [Suspect]
     Active Substance: SULFASALAZINE
     Dosage: 1 G, QD
  26. REMICADE [Suspect]
     Active Substance: INFLIXIMAB
     Indication: Rheumatoid arthritis
     Dosage: UNK (POWDER FOR SOLUTION INTRAVENOUS)
  27. GOLD SODIUM THIOMALATE [Suspect]
     Active Substance: GOLD SODIUM THIOMALATE
     Indication: Product used for unknown indication
     Dosage: UNK
  28. TRIAMCINOLONE ACETONIDE [Suspect]
     Active Substance: TRIAMCINOLONE ACETONIDE
     Indication: Rheumatoid arthritis
     Dosage: UNK
  29. PREDNISONE [Suspect]
     Active Substance: PREDNISONE
     Indication: Rheumatoid arthritis
     Dosage: 5 MG
  30. SULFATHIAZOLE [Suspect]
     Active Substance: SULFATHIAZOLE
     Indication: Product used for unknown indication
     Dosage: UNK (SPRAY (NOT INHALATION))
  31. METHOTREXATE [Suspect]
     Active Substance: METHOTREXATE
     Indication: Rheumatoid arthritis
     Dosage: 20 MG, QD
  32. METHOTREXATE [Suspect]
     Active Substance: METHOTREXATE
     Dosage: 40 MG
  33. METHOTREXATE [Suspect]
     Active Substance: METHOTREXATE
     Dosage: 25 MG, QD
  34. METHOTREXATE [Suspect]
     Active Substance: METHOTREXATE
     Dosage: 50 MG, QD
  35. METHOTREXATE [Suspect]
     Active Substance: METHOTREXATE
     Dosage: 1 MG
  36. METHOTREXATE [Suspect]
     Active Substance: METHOTREXATE
     Dosage: 25 MG
  37. METHOTREXATE [Suspect]
     Active Substance: METHOTREXATE
     Dosage: 20 MG, QD
  38. METHOTREXATE [Suspect]
     Active Substance: METHOTREXATE
     Dosage: 225 MG
  39. METHOTREXATE [Suspect]
     Active Substance: METHOTREXATE
     Dosage: 20 MG, QD
  40. TOPAMAX [Suspect]
     Active Substance: TOPIRAMATE
     Indication: Migraine
     Dosage: 25 MG, QD
  41. TOPAMAX [Suspect]
     Active Substance: TOPIRAMATE
     Dosage: 1 DOSAGE FORM (1 EVERY 2 DAYS)
  42. TOPAMAX [Suspect]
     Active Substance: TOPIRAMATE
     Dosage: 1 DOSAGE FORM (1 EVERY 2 DAYS)
  43. TOPAMAX [Suspect]
     Active Substance: TOPIRAMATE
  44. TOPAMAX [Suspect]
     Active Substance: TOPIRAMATE
     Dosage: ROUTE: UNKNOWN
  45. SIMPONI [Suspect]
     Active Substance: GOLIMUMAB
     Indication: Rheumatoid arthritis
     Dosage: 50 MG, DOSE FORM: SOLUTION, ROA: SUBCUTANEOUS USE
  46. SIMPONI [Suspect]
     Active Substance: GOLIMUMAB
     Indication: Prostatic specific antigen
     Dosage: UNK (SOLUTION SUBCUTANEOUS), DOSE FORM: SOLUTION
  47. SIMPONI [Suspect]
     Active Substance: GOLIMUMAB
     Dosage: UNK (SOLUTION SUBCUTANEOUS), DOSE FORM: SOLUTION
  48. ALENDRONIC ACID [Suspect]
     Active Substance: ALENDRONIC ACID
     Indication: Rheumatoid arthritis
     Dosage: UNK
  49. PSEUDOEPHEDRINE [Suspect]
     Active Substance: PSEUDOEPHEDRINE
     Indication: Rheumatoid arthritis
     Dosage: 10 MG
  50. PSEUDOEPHEDRINE [Suspect]
     Active Substance: PSEUDOEPHEDRINE
     Dosage: 1 MG
  51. PSEUDOEPHEDRINE [Suspect]
     Active Substance: PSEUDOEPHEDRINE
     Dosage: 25 MG
  52. OXYCODONE [Suspect]
     Active Substance: OXYCODONE
     Indication: Product used for unknown indication
     Dosage: ROUTE: UNKNOWN
  53. OXYCODONE [Suspect]
     Active Substance: OXYCODONE
     Dosage: UNK
  54. TOFACITINIB [Suspect]
     Active Substance: TOFACITINIB
     Indication: Rheumatoid arthritis
     Dosage: 5 MG, Q12H
  55. TOFACITINIB [Suspect]
     Active Substance: TOFACITINIB
     Dosage: ROUTE: UNKNOWN
  56. RITUXIMAB [Suspect]
     Active Substance: RITUXIMAB
     Indication: Rheumatoid arthritis
     Dosage: ROUTE: UNKNOWN
  57. RITUXIMAB [Suspect]
     Active Substance: RITUXIMAB
     Dosage: 365 MG
  58. COSENTYX [Suspect]
     Active Substance: SECUKINUMAB
     Indication: Rheumatoid arthritis
     Dosage: UNK
  59. COSENTYX [Suspect]
     Active Substance: SECUKINUMAB
     Indication: Psoriatic arthropathy
     Dosage: UNK, ROA: ENDOCERVICAL
  60. COSENTYX [Suspect]
     Active Substance: SECUKINUMAB
     Dosage: ROA: ENDOCERVICAL
  61. COSENTYX [Suspect]
     Active Substance: SECUKINUMAB
     Dosage: UNK
  62. DIETARY SUPPLEMENT\HERBALS [Suspect]
     Active Substance: DIETARY SUPPLEMENT\HERBALS
     Indication: Product used for unknown indication
     Dosage: UNK (ORAL DROPS)
  63. RAMIPRIL [Suspect]
     Active Substance: RAMIPRIL
     Indication: Rheumatoid arthritis
     Dosage: UNK
  64. VITAMIN C [Suspect]
     Active Substance: ASCORBIC ACID
     Indication: Product used for unknown indication
     Dosage: UNK
  65. STELARA [Suspect]
     Active Substance: USTEKINUMAB
     Indication: Product used for unknown indication
     Dosage: 40 MG, DOSE FORM: SOLUTION
  66. ERELZI [Suspect]
     Active Substance: ETANERCEPT-SZZS
     Indication: Rheumatoid arthritis
     Dosage: 50 MG, QW
  67. PHTHALYLSULFATHIAZOLE [Suspect]
     Active Substance: PHTHALYLSULFATHIAZOLE
     Indication: Rheumatoid arthritis
     Dosage: 500 MG
  68. PHTHALYLSULFATHIAZOLE [Suspect]
     Active Substance: PHTHALYLSULFATHIAZOLE
     Dosage: 400 MG
  69. PHTHALYLSULFATHIAZOLE [Suspect]
     Active Substance: PHTHALYLSULFATHIAZOLE
     Dosage: 2000 MG
  70. PHTHALYLSULFATHIAZOLE [Suspect]
     Active Substance: PHTHALYLSULFATHIAZOLE
     Dosage: 1000 MG
  71. PHTHALYLSULFATHIAZOLE [Suspect]
     Active Substance: PHTHALYLSULFATHIAZOLE
     Dosage: UNK
  72. CETIRIZINE [Suspect]
     Active Substance: CETIRIZINE HYDROCHLORIDE
     Indication: Rheumatoid arthritis
  73. CETIRIZINE [Suspect]
     Active Substance: CETIRIZINE HYDROCHLORIDE
     Indication: Off label use
  74. DICLOFENAC [Suspect]
     Active Substance: DICLOFENAC
     Indication: Product used for unknown indication
     Dosage: ROUTE: UNKNOWN
  75. DICLOFENAC [Suspect]
     Active Substance: DICLOFENAC
     Indication: Product used for unknown indication
  76. COSENTYX [Suspect]
     Active Substance: SECUKINUMAB
     Indication: Psoriatic arthropathy
     Dosage: UNKNOWN
  77. COSENTYX [Suspect]
     Active Substance: SECUKINUMAB
     Indication: Rheumatoid arthritis
  78. AIMOVIG [Suspect]
     Active Substance: ERENUMAB-AOOE
     Indication: Migraine
  79. AIMOVIG [Suspect]
     Active Substance: ERENUMAB-AOOE
     Indication: Migraine
     Dosage: SOLUTION
  80. METHOTREXATE [Suspect]
     Active Substance: METHOTREXATE
     Indication: Rheumatoid arthritis
  81. PSEUDOEPHEDRINE [Suspect]
     Active Substance: PSEUDOEPHEDRINE
     Indication: Rheumatoid arthritis
     Dosage: ROUTE: UNKNOWN
  82. SULFASALAZINE [Suspect]
     Active Substance: SULFASALAZINE
     Indication: Rheumatoid arthritis
  83. DICLOFENAC [Suspect]
     Active Substance: DICLOFENAC
     Indication: Product used for unknown indication
     Dosage: ROUTE: UNKNOWN
  84. DICLOFENAC [Suspect]
     Active Substance: DICLOFENAC
     Dosage: ROUTE: UNKNOWN
  85. VOLTAREN [Suspect]
     Active Substance: DICLOFENAC SODIUM
     Indication: Product used for unknown indication
     Dosage: UNK
  86. QUETIAPINE FUMARATE [Concomitant]
     Active Substance: QUETIAPINE FUMARATE
     Indication: Product used for unknown indication
     Dosage: ROUTE: UNKNOWN
  87. LORAZEPAM [Concomitant]
     Active Substance: LORAZEPAM
     Indication: Product used for unknown indication
     Dosage: UNK
  88. LORAZEPAM [Concomitant]
     Active Substance: LORAZEPAM
     Dosage: UNK
  89. PANTOPRAZOLE SODIUM [Concomitant]
     Active Substance: PANTOPRAZOLE SODIUM
     Indication: Product used for unknown indication
     Dosage: ROUTE: UNKNOWN
  90. PANTOPRAZOLE SODIUM [Concomitant]
     Active Substance: PANTOPRAZOLE SODIUM
     Dosage: UNK
  91. FISH OIL [Concomitant]
     Active Substance: FISH OIL
     Indication: Product used for unknown indication
     Dosage: UNK
  92. FISH OIL [Concomitant]
     Active Substance: FISH OIL
     Dosage: UNK
  93. RISEDRONATE SODIUM [Concomitant]
     Active Substance: RISEDRONATE SODIUM
     Indication: Product used for unknown indication
     Dosage: ROUTE: UNKNOWN
  94. LISINOPRIL [Concomitant]
     Active Substance: LISINOPRIL
     Indication: Product used for unknown indication
     Dosage: UNK
  95. LISINOPRIL [Concomitant]
     Active Substance: LISINOPRIL
     Dosage: UNK
  96. DOCONEXENT\ICOSAPENT [Concomitant]
     Active Substance: DOCONEXENT\ICOSAPENT
     Indication: Product used for unknown indication
     Dosage: ROA: UNKNOWN

REACTIONS (30)
  - Type 2 diabetes mellitus [Fatal]
  - Psoriatic arthropathy [Fatal]
  - Wheezing [Fatal]
  - Pemphigus [Fatal]
  - Urticaria [Fatal]
  - Taste disorder [Fatal]
  - Nasopharyngitis [Fatal]
  - Stomatitis [Fatal]
  - Rash [Fatal]
  - Pain [Fatal]
  - Peripheral swelling [Fatal]
  - Pericarditis [Fatal]
  - Musculoskeletal pain [Fatal]
  - Nail disorder [Fatal]
  - Peripheral venous disease [Fatal]
  - Night sweats [Fatal]
  - Contraindicated product administered [Fatal]
  - Normal newborn [Fatal]
  - Rheumatoid arthritis [Fatal]
  - Swelling [Fatal]
  - Synovitis [Fatal]
  - Product quality issue [Fatal]
  - Vomiting [Fatal]
  - Wound infection [Fatal]
  - Obesity [Fatal]
  - Systemic lupus erythematosus [Fatal]
  - Wound [Fatal]
  - Osteoarthritis [Fatal]
  - Weight increased [Fatal]
  - Paraesthesia [Fatal]
